FAERS Safety Report 5283423-0 (Version None)
Quarter: 2007Q1

REPORT INFORMATION
  Report Type: 
  Country: None (occurrence: None)
  Receive Date: 20061226
  Receipt Date: 20060914
  Transmission Date: 20070707
  Serious: No
  Sender: FDA-Public Use
  Company Number: PHEH2006US11806

PATIENT
  Sex: Female

DRUGS (2)
  1. ENABLEX [Suspect]
     Indication: HYPERTONIC BLADDER
     Dosage: SEE IMAGE
     Dates: start: 20060501, end: 20060901
  2. ENABLEX [Suspect]
     Indication: HYPERTONIC BLADDER
     Dosage: SEE IMAGE
     Dates: start: 20060901

REACTIONS (3)
  - DRUG INEFFECTIVE [None]
  - DRY MOUTH [None]
  - DRY THROAT [None]
